FAERS Safety Report 7343015-6 (Version None)
Quarter: 2011Q1

REPORT INFORMATION
  Report Type: 
  Country: None (occurrence: None)
  Receive Date: 20110310
  Receipt Date: 20110304
  Transmission Date: 20110831
  Serious: Yes (Death, Hospitalization, Other)
  Sender: FDA-Public Use
  Company Number: PHHY2011AR17730

PATIENT
  Sex: Male

DRUGS (1)
  1. DIOVAN [Suspect]
     Indication: HYPERTENSION
     Dosage: 1 DF, DAILY

REACTIONS (4)
  - DEMENTIA [None]
  - DEPRESSED MOOD [None]
  - MYOCARDIAL INFARCTION [None]
  - DELIRIUM [None]
